FAERS Safety Report 5193690-X (Version None)
Quarter: 2006Q4

REPORT INFORMATION
  Report Type: 
  Country: None (occurrence: None)
  Receive Date: 20061222
  Receipt Date: 20061211
  Transmission Date: 20070319
  Serious: Yes (Death)
  Sender: FDA-Public Use
  Company Number: 085

PATIENT
  Sex: Male

DRUGS (1)
  1. FAZACLO ODT [Suspect]
     Dosage: 200 MG PO DAILY
     Route: 048
     Dates: start: 20050914, end: 20061127

REACTIONS (2)
  - CARDIO-RESPIRATORY ARREST [None]
  - CYANOSIS [None]
